FAERS Safety Report 9961307 (Version 2)
Quarter: 2014Q3

REPORT INFORMATION
  Report Type: Spontaneous
  Country: US (occurrence: US)
  Receive Date: 20140305
  Receipt Date: 20140912
  Transmission Date: 20150326
  Serious: Yes (Hospitalization, Other)
  Sender: FDA-Public Use
  Company Number: US-JNJFOC-20140213624

PATIENT
  Age: 49 Year
  Sex: Male
  Weight: 192.78 kg

DRUGS (25)
  1. DITROPAN XL [Suspect]
     Active Substance: OXYBUTYNIN CHLORIDE
     Indication: ENURESIS
     Route: 048
     Dates: end: 201405
  2. ISMO [Concomitant]
     Active Substance: ISOSORBIDE MONONITRATE
     Dosage: TAKE 1 (60 MG) AND 1/2 TABS (90MG)
     Route: 048
  3. SEROQUEL [Interacting]
     Active Substance: QUETIAPINE FUMARATE
     Indication: SCHIZOPHRENIA
     Route: 065
  4. ATARAX [Concomitant]
     Active Substance: HYDROXYZINE\HYDROXYZINE HYDROCHLORIDE
     Route: 065
  5. NUCYNTA [Concomitant]
     Active Substance: TAPENTADOL HYDROCHLORIDE
     Route: 065
  6. TOPAMAX [Concomitant]
     Active Substance: TOPIRAMATE
     Route: 065
  7. COLACE [Concomitant]
     Active Substance: DOCUSATE SODIUM
     Route: 065
  8. CLARITIN [Concomitant]
     Active Substance: LORATADINE
     Route: 065
  9. LATUDA [Interacting]
     Active Substance: LURASIDONE HYDROCHLORIDE
     Indication: SCHIZOPHRENIA
     Dosage: 1.5 TABS(40MG) IN THE AM AND 2 TABS IN THE EVENING WITH FOOD
     Route: 065
  10. TRICOR [Concomitant]
     Active Substance: FENOFIBRATE
     Route: 048
  11. MONOKET [Concomitant]
     Active Substance: ISOSORBIDE MONONITRATE
     Dosage: TAKE 1 (60 MG) AND 1/2 TABS (90MG)
     Route: 048
  12. ZESTRIL [Concomitant]
     Active Substance: LISINOPRIL
     Route: 065
  13. CELEBREX [Concomitant]
     Active Substance: CELECOXIB
     Route: 065
  14. PRINIVIL [Concomitant]
     Active Substance: LISINOPRIL
     Route: 065
  15. KLONOPIN [Concomitant]
     Active Substance: CLONAZEPAM
     Route: 065
  16. ASPIRIN. [Concomitant]
     Active Substance: ASPIRIN
     Route: 048
  17. IMDUR [Concomitant]
     Active Substance: ISOSORBIDE MONONITRATE
     Dosage: TAKE 1 (60 MG) AND 1/2 TABS (90MG)
     Route: 048
  18. LASIX [Concomitant]
     Active Substance: FUROSEMIDE
     Route: 048
  19. PRILOSEC [Concomitant]
     Active Substance: OMEPRAZOLE MAGNESIUM
     Route: 048
  20. LATUDA [Interacting]
     Active Substance: LURASIDONE HYDROCHLORIDE
     Indication: SCHIZOPHRENIA
     Dosage: 1.5 TABS(40MG) IN THE AM AND 2 TABS IN THE EVENING WITH FOOD
     Route: 065
  21. CARVEDILOL. [Concomitant]
     Active Substance: CARVEDILOL
     Route: 065
  22. LIPITOR [Concomitant]
     Active Substance: ATORVASTATIN CALCIUM
     Dosage: EVERY DAY
     Route: 065
  23. PLAVIX [Concomitant]
     Active Substance: CLOPIDOGREL BISULFATE
     Route: 065
  24. AMBIEN [Concomitant]
     Active Substance: ZOLPIDEM TARTRATE
     Indication: INSOMNIA
     Dosage: 1-2 TABS (25MG) PRN BUT THE PATIENT TAKES EVERY NIGHT USUALLY
     Route: 065
  25. ZETIA [Concomitant]
     Active Substance: EZETIMIBE
     Route: 065

REACTIONS (3)
  - Schizophrenia [Not Recovered/Not Resolved]
  - Drug interaction [Unknown]
  - Schizophrenia, paranoid type [Unknown]

NARRATIVE: CASE EVENT DATE: 201311
